FAERS Safety Report 4709471-4 (Version None)
Quarter: 2005Q3

REPORT INFORMATION
  Report Type: 
  Country: None (occurrence: None)
  Receive Date: 20050706
  Receipt Date: 20050620
  Transmission Date: 20060218
  Serious: Yes (Other)
  Sender: FDA-Public Use
  Company Number: 215651

PATIENT
  Age: 70 Year
  Sex: Female

DRUGS (10)
  1. RITUXAN [Suspect]
     Indication: NON-HODGKIN'S LYMPHOMA
     Dosage: 580 MG, INTRAVENOUS
     Route: 042
     Dates: start: 20011207, end: 20020318
  2. CYCLOPHOSPHAMIDE [Suspect]
     Indication: NON-HODGKIN'S LYMPHOMA
     Dosage: 1200 MG, IV DRIP
     Route: 041
     Dates: start: 20020115, end: 20020320
  3. DOXORUBICIN HYDROCHLORIDE [Suspect]
     Indication: NON-HODGKIN'S LYMPHOMA
     Dosage: 50 MG, IV DRIP
     Route: 041
     Dates: start: 20020115, end: 20020320
  4. VINCRISTINE [Suspect]
     Indication: NON-HODGKIN'S LYMPHOMA
     Dosage: 2 MG, IV DRIP
     Route: 041
     Dates: start: 20020115, end: 20020320
  5. PREDONINE (PREDNISOLONE ACETATE, PREDNISOLONE, PREDNISOLONE SODIUM SUC [Suspect]
     Indication: NON-HODGKIN'S LYMPHOMA
     Dosage: 90 MG, ORAL
     Route: 048
     Dates: start: 20020115, end: 20020320
  6. ACETAMINOPHEN [Concomitant]
  7. POLARAMINE [Concomitant]
  8. KYTRIL [Concomitant]
  9. HYDROCORTISONE SODIUM SUCCINATE [Concomitant]
  10. CEFOZOPRAN HYDROCHLORIDE (CEFOZOPRAN HYDROCHLORIDE) [Concomitant]

REACTIONS (3)
  - ARRHYTHMIA [None]
  - NEUTROPHIL PERCENTAGE DECREASED [None]
  - WHITE BLOOD CELL COUNT DECREASED [None]
